FAERS Safety Report 15478478 (Version 2)
Quarter: 2020Q2

REPORT INFORMATION
  Report Type: Report from Study
  Country: CA (occurrence: CA)
  Receive Date: 20181009
  Receipt Date: 20200626
  Transmission Date: 20200713
  Serious: Yes (Other)
  Sender: FDA-Public Use
  Company Number: CA-JNJFOC-20180826989

PATIENT
  Age: 17 Year
  Sex: Female
  Weight: 48.1 kg

DRUGS (2)
  1. REMICADE [Suspect]
     Active Substance: INFLIXIMAB
     Indication: COLITIS ULCERATIVE
     Dosage: ON 20/AUG/2018, THE PATIENT RECEIVED 9TH 400 MG INFLIXIMAB INFUSION.?ON 01/OCT/2018, THE PATIENT REC
     Route: 042
     Dates: start: 20171106
  2. REMICADE [Suspect]
     Active Substance: INFLIXIMAB
     Dosage: ON 11/JUN/2020, THE PATIENT RECEIVED 27TH 600 MG INFLIXIMAB INFUSION.
     Route: 042

REACTIONS (6)
  - Haemoglobin decreased [Recovering/Resolving]
  - Frequent bowel movements [Unknown]
  - Off label use [Unknown]
  - Haematochezia [Not Recovered/Not Resolved]
  - General physical health deterioration [Unknown]
  - Product use issue [Unknown]

NARRATIVE: CASE EVENT DATE: 20171106
